FAERS Safety Report 7509608-8 (Version None)
Quarter: 2011Q2

REPORT INFORMATION
  Report Type: 
  Country: None (occurrence: None)
  Receive Date: 20110527
  Receipt Date: 20110518
  Transmission Date: 20111010
  Serious: Yes (Other)
  Sender: FDA-Public Use
  Company Number: PT-ASTRAZENECA-2011SE31257

PATIENT
  Sex: Female

DRUGS (2)
  1. SYMBICORT [Suspect]
     Route: 055
  2. INDERAL [Interacting]
     Route: 065

REACTIONS (3)
  - MALAISE [None]
  - DRUG INTERACTION [None]
  - ARRHYTHMIA [None]
